FAERS Safety Report 16936054 (Version 5)
Quarter: 2020Q3

REPORT INFORMATION
  Report Type: Report from Study
  Country: None (occurrence: US)
  Receive Date: 20191018
  Receipt Date: 20200916
  Transmission Date: 20201102
  Serious: Yes (Hospitalization, Other)
  Sender: FDA-Public Use
  Company Number: US-INSMED, INC.-US-INS-19-02758

PATIENT
  Age: 84 Year
  Sex: Female

DRUGS (1)
  1. ARIKAYCE [Suspect]
     Active Substance: AMIKACIN
     Indication: MYCOBACTERIAL INFECTION
     Route: 055
     Dates: end: 2020

REACTIONS (5)
  - Dyspnoea [Not Recovered/Not Resolved]
  - Pruritus [Not Recovered/Not Resolved]
  - Deafness [Unknown]
  - Hospitalisation [Unknown]
  - Asthenia [Unknown]

NARRATIVE: CASE EVENT DATE: 20190812
